FAERS Safety Report 8078185-8 (Version None)
Quarter: 2012Q1

REPORT INFORMATION
  Report Type: 
  Country: None (occurrence: None)
  Receive Date: 20120127
  Receipt Date: 20120118
  Transmission Date: 20120608
  Serious: Yes (Other)
  Sender: FDA-Public Use
  Company Number: CA-ASTRAZENECA-2012SE03156

PATIENT
  Age: 65 Year
  Sex: Male

DRUGS (2)
  1. PULMICORT [Suspect]
     Indication: ASTHMA
     Route: 055
  2. BRICANYL [Suspect]
     Indication: ASTHMA
     Route: 055

REACTIONS (1)
  - DYSPNOEA [None]
